FAERS Safety Report 5842801-9 (Version None)
Quarter: 2008Q3

REPORT INFORMATION
  Report Type: 
  Country: None (occurrence: None)
  Receive Date: 20080811
  Receipt Date: 20080729
  Transmission Date: 20090109
  Serious: No
  Sender: FDA-Public Use
  Company Number: US024235

PATIENT
  Sex: Female

DRUGS (1)
  1. FENTORA [Suspect]
     Indication: COMPLEX REGIONAL PAIN SYNDROME
     Dosage: 400 UG BUCCAL
     Route: 002

REACTIONS (4)
  - INCORRECT DRUG DOSAGE FORM ADMINISTERED [None]
  - MEDICATION ERROR [None]
  - VOMITING [None]
  - WRONG TECHNIQUE IN DRUG USAGE PROCESS [None]
